FAERS Safety Report 8887690 (Version 4)
Quarter: 2013Q1

REPORT INFORMATION
  Report Type: Spontaneous
  Country: GB (occurrence: None)
  Receive Date: 20121031
  Receipt Date: 20130204
  Transmission Date: 20140127
  Serious: Yes (Hospitalization)
  Sender: FDA-Public Use
  Company Number: 1456542

PATIENT
  Age: 5 Year
  Sex: Male
  Weight: 15.25 kg

DRUGS (12)
  1. VINCRISTINE SULFATE [Suspect]
     Indication: NEOPLASM MALIGNANT
     Route: 042
     Dates: start: 20120720
  2. DOXORUBICIN HYDROCHLORIDE [Suspect]
     Indication: NEOPLASM MALIGNANT
     Dosage: 20 MG, DAY 1 AND 2 EACH CYCLE
     Dates: start: 20120721
  3. DACTINOMYCIN [Suspect]
     Indication: NEOPLASM MALIGNANT
     Dates: start: 20120720
  4. IFOSFAMIDE [Suspect]
     Indication: NEOPLASM MALIGNANT
     Dosage: 2 G, DAY 1 AND 2 OF EACH CYCLE
     Route: 042
     Dates: start: 20120720
  5. COTRIMOXAZOLE [Concomitant]
  6. MOVICOL [Concomitant]
  7. PARACETAMOL [Concomitant]
  8. ORAMORPH [Concomitant]
  9. CHLORHEXIDINE [Concomitant]
  10. METOCLOPRAMIDE [Concomitant]
  11. GRANISETRON [Concomitant]
  12. ONDANSETRON [Concomitant]

REACTIONS (2)
  - Febrile neutropenia [None]
  - Hypophagia [None]
